FAERS Safety Report 6321363-6 (Version None)
Quarter: 2009Q3

REPORT INFORMATION
  Report Type: 
  Country: None (occurrence: None)
  Receive Date: 20090822
  Receipt Date: 20090118
  Transmission Date: 20100115
  Serious: No
  Sender: FDA-Public Use
  Company Number: US-ABBOTT-09P-163-0498435-00

PATIENT
  Sex: Male

DRUGS (6)
  1. NIASPAN [Suspect]
     Indication: HIGH DENSITY LIPOPROTEIN DECREASED
     Dates: start: 20081201
  2. NIASPAN [Suspect]
     Indication: LOW DENSITY LIPOPROTEIN INCREASED
     Dates: start: 20090101, end: 20090113
  3. NIASPAN [Suspect]
     Dosage: 500 MG AT LUNCH AND 500 MG AT BEDTIME
     Dates: start: 20090113
  4. ASPIRIN [Concomitant]
     Indication: DRUG USE FOR UNKNOWN INDICATION
     Dates: start: 20081201, end: 20090101
  5. ASPIRIN [Concomitant]
     Dates: start: 20090101
  6. AMBIEN [Concomitant]
     Indication: INSOMNIA
     Dates: start: 20090117

REACTIONS (4)
  - FEELING JITTERY [None]
  - FLUSHING [None]
  - PARAESTHESIA [None]
  - SLEEP DISORDER [None]
